FAERS Safety Report 10593999 (Version 1)
Quarter: 2014Q4

REPORT INFORMATION
  Report Type: Spontaneous
  Country: FR (occurrence: FR)
  Receive Date: 20141119
  Receipt Date: 20141119
  Transmission Date: 20150529
  Serious: Yes (Hospitalization)
  Sender: FDA-Public Use
  Company Number: FR-PFIZER INC-2014314819

PATIENT
  Age: 34 Year
  Sex: Female

DRUGS (5)
  1. PROFENID [Suspect]
     Active Substance: KETOPROFEN
     Dosage: 100 MG, 2X/DAY
     Route: 042
     Dates: start: 20141017, end: 20141020
  2. DOLIPRANE [Suspect]
     Active Substance: ACETAMINOPHEN
     Indication: ANKYLOSING SPONDYLITIS
  3. FRAGMIN [Concomitant]
     Active Substance: DALTEPARIN SODIUM
     Indication: ANKYLOSING SPONDYLITIS
     Dosage: UNK
     Dates: start: 20141015, end: 20141017
  4. MINIDRIL [Suspect]
     Active Substance: ETHINYL ESTRADIOL\LEVONORGESTREL
     Dosage: UNK
     Route: 048
  5. DOLIPRANE [Suspect]
     Active Substance: ACETAMINOPHEN
     Indication: MIGRAINE
     Dosage: UNK
     Route: 048
     Dates: start: 20141015

REACTIONS (1)
  - Thrombocytopenia [Not Recovered/Not Resolved]

NARRATIVE: CASE EVENT DATE: 20141016
